FAERS Safety Report 13766365 (Version 1)
Quarter: 2017Q3

REPORT INFORMATION
  Report Type: Spontaneous
  Country: FR (occurrence: FR)
  Receive Date: 20170719
  Receipt Date: 20170719
  Transmission Date: 20171127
  Serious: Yes (Hospitalization)
  Sender: FDA-Public Use
  Company Number: FR-SA-2017SA127217

PATIENT
  Age: 59 Year
  Sex: Male

DRUGS (6)
  1. LARGACTIL [Concomitant]
     Active Substance: CHLORPROMAZINE
  2. PIRILENE [Suspect]
     Active Substance: PYRAZINAMIDE
     Indication: BONE TUBERCULOSIS
     Route: 048
     Dates: start: 20161119, end: 20170111
  3. RIMIFON [Suspect]
     Active Substance: ISONIAZID
     Indication: BONE TUBERCULOSIS
     Route: 048
     Dates: start: 20161119, end: 20170111
  4. ETHAMBUTOL [Concomitant]
     Active Substance: ETHAMBUTOL HYDROCHLORIDE
     Route: 065
  5. MOXIFLOXACIN. [Concomitant]
     Active Substance: MOXIFLOXACIN
  6. RIFADINE [Suspect]
     Active Substance: RIFAMPIN
     Indication: BONE TUBERCULOSIS
     Route: 048
     Dates: start: 20161119, end: 20170111

REACTIONS (2)
  - Liver transplant [Recovered/Resolved with Sequelae]
  - Acute hepatic failure [Recovered/Resolved with Sequelae]

NARRATIVE: CASE EVENT DATE: 20170112
